FAERS Safety Report 16308945 (Version 1)
Quarter: 2019Q2

REPORT INFORMATION
  Report Type: Spontaneous
  Country: IL (occurrence: IL)
  Receive Date: 20190514
  Receipt Date: 20190514
  Transmission Date: 20190711
  Serious: Yes (Hospitalization, Other)
  Sender: FDA-Public Use
  Company Number: IL-009507513-1903ISR006331

PATIENT
  Age: 70 Year
  Sex: Female
  Weight: 67 kg

DRUGS (3)
  1. FEMARA [Concomitant]
     Active Substance: LETROZOLE
     Indication: BREAST CANCER METASTATIC
     Dosage: UNK
     Route: 048
  2. PRAVALIP [Concomitant]
     Indication: HYPERLIPIDAEMIA
     Dosage: 20 MILLIGRAM, ONCE DAILY
     Route: 048
  3. FOSALAN ONCE-WEEKLY 70 MG [Suspect]
     Active Substance: ALENDRONATE SODIUM
     Indication: OSTEOPOROSIS
     Dosage: 70 MG, ONCE A WEEK, NUMBER OF TREATMENTS:42
     Route: 048

REACTIONS (3)
  - Parophthalmia [Recovered/Resolved]
  - Dacryoadenitis acquired [Recovered/Resolved]
  - Scleritis [Recovered/Resolved]
